FAERS Safety Report 7699214-7 (Version None)
Quarter: 2011Q3

REPORT INFORMATION
  Report Type: 
  Country: None (occurrence: None)
  Receive Date: 20110819
  Receipt Date: 20110810
  Transmission Date: 20111222
  Serious: Yes (Hospitalization)
  Sender: FDA-Public Use
  Company Number: BR-ASTRAZENECA-2011SE48548

PATIENT
  Age: 92 Year
  Sex: Female
  Weight: 74 kg

DRUGS (10)
  1. UNKNOWN [Suspect]
     Indication: HALLUCINATION
     Route: 048
     Dates: start: 20070101, end: 20110201
  2. NEXIUM [Suspect]
     Indication: ABDOMINAL PAIN UPPER
     Route: 048
     Dates: start: 20090101
  3. SEROQUEL [Suspect]
     Indication: HALLUCINATION
     Route: 048
     Dates: start: 20110201
  4. CITALOPRAM [Suspect]
     Indication: HALLUCINATION
     Route: 048
     Dates: start: 20070101, end: 20110201
  5. SEROQUEL [Suspect]
     Route: 048
     Dates: start: 20110201
  6. SEROQUEL [Suspect]
     Route: 048
     Dates: start: 20110201
  7. CITALOPRAM [Suspect]
     Indication: MEMORY IMPAIRMENT
     Route: 048
     Dates: start: 20070101, end: 20110201
  8. NEXIUM [Suspect]
     Route: 048
  9. UNKNOWN [Suspect]
     Indication: MEMORY IMPAIRMENT
     Route: 048
     Dates: start: 20070101, end: 20110201
  10. SEROQUEL [Suspect]
     Indication: MEMORY IMPAIRMENT
     Route: 048
     Dates: start: 20110201

REACTIONS (8)
  - HALLUCINATION [None]
  - INCORRECT DOSE ADMINISTERED [None]
  - ABDOMINAL PAIN UPPER [None]
  - OFF LABEL USE [None]
  - MEMORY IMPAIRMENT [None]
  - URINARY TRACT INFECTION [None]
  - DRUG INEFFECTIVE [None]
  - NASOPHARYNGITIS [None]
